FAERS Safety Report 5041184-4 (Version None)
Quarter: 2006Q3

REPORT INFORMATION
  Report Type: 
  Country: None (occurrence: None)
  Receive Date: 20060703
  Receipt Date: 20060626
  Transmission Date: 20061208
  Serious: Yes (Other)
  Sender: FDA-Public Use
  Company Number: US-GLAXOSMITHKLINE-A0610319A

PATIENT
  Sex: Female

DRUGS (4)
  1. WELLBUTRIN SR [Suspect]
     Indication: DEPRESSION
     Dosage: 150MG PER DAY
     Route: 048
  2. ADDERALL 10 [Concomitant]
  3. TRAZODONE HCL [Concomitant]
  4. ANTIBIOTICS [Concomitant]

REACTIONS (3)
  - ANAEMIA [None]
  - HEPATIC ENZYME INCREASED [None]
  - INFECTION [None]
